FAERS Safety Report 11261289 (Version 2)
Quarter: 2015Q3

REPORT INFORMATION
  Report Type: Spontaneous
  Country: CA (occurrence: CA)
  Receive Date: 20150710
  Receipt Date: 20150812
  Transmission Date: 20151125
  Serious: Yes (Other)
  Sender: FDA-Public Use
  Company Number: CA-ASTRAZENECA-2015SE66105

PATIENT
  Age: 53 Year
  Sex: Male

DRUGS (7)
  1. ATORVASTATIN [Concomitant]
     Active Substance: ATORVASTATIN
     Indication: DYSLIPIDAEMIA
     Route: 048
     Dates: start: 20150226
  2. ASA [Concomitant]
     Active Substance: ASPIRIN
     Indication: ANTICOAGULANT THERAPY
     Route: 048
     Dates: start: 20150226
  3. METOPROLOL [Concomitant]
     Active Substance: METOPROLOL
     Indication: PROPHYLAXIS
     Route: 048
     Dates: start: 20150226
  4. NITROGLYCERIN. [Concomitant]
     Active Substance: NITROGLYCERIN
     Indication: PROPHYLAXIS
     Route: 060
     Dates: start: 20150226
  5. PERINDOPRIL [Concomitant]
     Active Substance: PERINDOPRIL
     Indication: ACUTE CORONARY SYNDROME
     Route: 048
     Dates: start: 20150226
  6. COLCHICINE. [Concomitant]
     Active Substance: COLCHICINE
     Indication: GOUT
     Route: 048
     Dates: start: 20150226
  7. BRILINTA [Suspect]
     Active Substance: TICAGRELOR
     Route: 048
     Dates: start: 20150205, end: 20150314

REACTIONS (3)
  - Disease progression [Unknown]
  - Gait disturbance [Unknown]
  - Gout [Recovered/Resolved]

NARRATIVE: CASE EVENT DATE: 20150210
